FAERS Safety Report 8496619-1 (Version None)
Quarter: 2012Q3

REPORT INFORMATION
  Report Type: 
  Country: None (occurrence: None)
  Receive Date: 20120709
  Receipt Date: 20120705
  Transmission Date: 20120928
  Serious: Yes (Hospitalization)
  Sender: FDA-Public Use
  Company Number: US-JNJFOC-20120609179

PATIENT
  Sex: Female
  Weight: 81 kg

DRUGS (2)
  1. ORTHO-NOVUM 1/35 [Suspect]
     Indication: DRUG LEVEL
     Route: 048
     Dates: start: 20120419, end: 20120501
  2. BAL8557 [Interacting]
     Indication: DRUG LEVEL
     Dosage: UID/QD
     Route: 048
     Dates: start: 20120427, end: 20120504

REACTIONS (4)
  - INCORRECT DOSE ADMINISTERED [None]
  - GASTRITIS [None]
  - GASTROOESOPHAGEAL REFLUX DISEASE [None]
  - DRUG INTERACTION [None]
